FAERS Safety Report 4882901-3 (Version None)
Quarter: 2006Q1

REPORT INFORMATION
  Report Type: 
  Country: None (occurrence: None)
  Receive Date: 20060112
  Receipt Date: 20060103
  Transmission Date: 20060701
  Serious: Yes (Death)
  Sender: FDA-Public Use
  Company Number: 2006-0009057

PATIENT
  Age: 39 Year
  Sex: Female

DRUGS (6)
  1. HEPSERA [Suspect]
     Indication: HEPATITIS B
     Dosage: 10 MG, 1 IN 1 D, ORAL
     Route: 048
     Dates: start: 20040612
  2. ZEFFIX (LAMIVUDINE) [Suspect]
     Indication: HEPATIC CIRRHOSIS
     Dosage: 100 MG, 1 IN 1 D, ORAL
     Route: 048
     Dates: start: 20000101
  3. FLUCONAZOLE [Concomitant]
  4. LACTULOSE [Concomitant]
  5. SODIUM ALGINATE (SODIUM ALGINATE) [Concomitant]
  6. MICONAZOLE NITRATE [Concomitant]

REACTIONS (1)
  - DEATH [None]
